FAERS Safety Report 4282898-3 (Version None)
Quarter: 2004Q1

REPORT INFORMATION
  Report Type: 
  Country: None (occurrence: None)
  Receive Date: 20040130
  Receipt Date: 20031009
  Transmission Date: 20041129
  Serious: No
  Sender: FDA-Public Use
  Company Number: US-BRISTOL-MYERS SQUIBB COMPANY-12407904

PATIENT
  Age: 47 Year
  Sex: Male
  Weight: 84 kg

DRUGS (1)
  1. SERZONE [Suspect]
     Indication: DEPRESSION
     Dosage: 200MG, 3 TABLETS (TOTAL DOSE OF 600MG) ONCE DAILY AT BEDTIME. TAKING ^ABOUT 1 YEAR^.
     Route: 048
     Dates: start: 20021001

REACTIONS (1)
  - VISUAL DISTURBANCE [None]
